FAERS Safety Report 9153488 (Version 3)
Quarter: 2013Q4

REPORT INFORMATION
  Report Type: Spontaneous
  Country: US (occurrence: US)
  Receive Date: 20130311
  Receipt Date: 20131014
  Transmission Date: 20140711
  Serious: Yes (Hospitalization, Other)
  Sender: FDA-Public Use
  Company Number: US-BAYER-2013-026320

PATIENT
  Age: 32 Year
  Sex: Female

DRUGS (7)
  1. YAZ [Suspect]
     Route: 048
  2. OCELLA [Suspect]
     Route: 048
  3. YASMIN [Suspect]
     Route: 048
  4. COMPAZINE [Concomitant]
  5. PHENERGAN [Concomitant]
  6. BENADRYL [Concomitant]
  7. PROTONIX [Concomitant]

REACTIONS (3)
  - Cholecystitis [None]
  - Portal vein thrombosis [None]
  - Deep vein thrombosis [None]
